FAERS Safety Report 10870480 (Version 1)
Quarter: 2015Q1

REPORT INFORMATION
  Report Type: Spontaneous
  Country: US (occurrence: US)
  Receive Date: 20150226
  Receipt Date: 20150226
  Transmission Date: 20150721
  Serious: Yes (Other)
  Sender: FDA-Public Use
  Company Number: US-TEVA-470020USA

PATIENT
  Sex: Female

DRUGS (2)
  1. AMPHETAMINE W/DEXTROAMPHETAMINE [Suspect]
     Active Substance: AMPHETAMINE SULFATE\DEXTROAMPHETAMINE
     Dosage: 60 MILLIGRAM DAILY;
     Dates: start: 201212
  2. AMPHETAMINE W/DEXTROAMPHETAMINE [Suspect]
     Active Substance: AMPHETAMINE SULFATE\DEXTROAMPHETAMINE
     Dates: start: 201401

REACTIONS (10)
  - Migraine [Unknown]
  - Seizure [Unknown]
  - Drug ineffective [Unknown]
  - Off label use [Unknown]
  - Pain [Unknown]
  - Influenza like illness [Unknown]
  - Fatigue [Unknown]
  - Asthenia [Unknown]
  - Product quality issue [Unknown]
  - Reaction to drug excipients [Unknown]

NARRATIVE: CASE EVENT DATE: 20140220
